FAERS Safety Report 18103460 (Version 1)
Quarter: 2020Q3

REPORT INFORMATION
  Report Type: Spontaneous
  Country: US (occurrence: US)
  Receive Date: 20200730
  Receipt Date: 20200730
  Transmission Date: 20201103
  Serious: Yes (Death, Life-Threatening, Hospitalization)
  Sender: FDA-Public Use
  Company Number: None

PATIENT
  Age: 74 Year
  Sex: Male
  Weight: 58.97 kg

DRUGS (1)
  1. TOCILIZUMAB (TOCILIZUMAB 20MG/ML INJ, SOLN, 4ML) [Suspect]
     Active Substance: TOCILIZUMAB
     Indication: COVID-19
     Route: 042
     Dates: start: 20200607, end: 20200607

REACTIONS (10)
  - Candida infection [None]
  - Abdominal pain [None]
  - Cardiac arrest [None]
  - General physical health deterioration [None]
  - Sepsis [None]
  - Hypotension [None]
  - Intestinal perforation [None]
  - Fistula [None]
  - Candida test positive [None]
  - Pelvic organ injury [None]

NARRATIVE: CASE EVENT DATE: 20200614
